FAERS Safety Report 17857068 (Version 3)
Quarter: 2020Q2

REPORT INFORMATION
  Report Type: Report from Study
  Country: US (occurrence: US)
  Receive Date: 20200603
  Receipt Date: 20200624
  Transmission Date: 20200714
  Serious: Yes (Hospitalization)
  Sender: FDA-Public Use
  Company Number: US-ACTELION-A-US2020-204904

PATIENT
  Age: 52 Year
  Sex: Male

DRUGS (2)
  1. ORENITRAM [Concomitant]
     Active Substance: TREPROSTINIL
  2. OPSUMIT [Suspect]
     Active Substance: MACITENTAN
     Indication: PULMONARY ARTERIAL HYPERTENSION
     Dosage: 10 MG, QD
     Route: 048
     Dates: start: 20200410, end: 20200501

REACTIONS (6)
  - Anaemia [Recovering/Resolving]
  - Vomiting [Not Recovered/Not Resolved]
  - Hepatic failure [Unknown]
  - Nausea [Not Recovered/Not Resolved]
  - Therapy change [Unknown]
  - Chronic disease [Unknown]

NARRATIVE: CASE EVENT DATE: 20200415
